FAERS Safety Report 19868564 (Version 1)
Quarter: 2021Q3

REPORT INFORMATION
  Report Type: Spontaneous
  Country: IT (occurrence: IT)
  Receive Date: 20210922
  Receipt Date: 20210922
  Transmission Date: 20211014
  Serious: Yes (Other)
  Sender: FDA-Public Use
  Company Number: IT-MYLANLABS-2021M1063362

PATIENT
  Sex: Female

DRUGS (6)
  1. GEMCITABINE. [Suspect]
     Active Substance: GEMCITABINE
     Indication: HEPATIC CANCER
     Dosage: UNK
     Route: 065
     Dates: start: 2020
  2. CAPECITABINE. [Suspect]
     Active Substance: CAPECITABINE
     Indication: HEPATIC CANCER
     Dosage: UNK
     Route: 065
     Dates: start: 2020
  3. CAELYX [Suspect]
     Active Substance: DOXORUBICIN HYDROCHLORIDE
     Indication: HEPATIC CANCER
     Dosage: UNK
     Route: 065
     Dates: start: 2020
  4. PACLITAXEL. [Suspect]
     Active Substance: PACLITAXEL
     Indication: HEPATIC CANCER
     Dosage: UNK
     Route: 065
     Dates: start: 2020
  5. CARBOPLATIN. [Suspect]
     Active Substance: CARBOPLATIN
     Indication: HEPATIC CANCER
     Dosage: UNK
     Route: 065
     Dates: start: 2020
  6. ERIBULIN [Suspect]
     Active Substance: ERIBULIN
     Indication: HEPATIC CANCER
     Dosage: UNK
     Route: 065
     Dates: start: 202012, end: 20210407

REACTIONS (2)
  - Malignant neoplasm progression [Not Recovered/Not Resolved]
  - Liver function test abnormal [Not Recovered/Not Resolved]

NARRATIVE: CASE EVENT DATE: 2020
